FAERS Safety Report 9206693 (Version 2)
Quarter: 2014Q1

REPORT INFORMATION
  Report Type: Spontaneous
  Country: US (occurrence: US)
  Receive Date: 20130403
  Receipt Date: 20140107
  Transmission Date: 20141002
  Serious: Yes (Other)
  Sender: FDA-Public Use
  Company Number: US-BAYER-2013-040152

PATIENT
  Age: 21 Year
  Sex: Female

DRUGS (5)
  1. YAZ [Suspect]
     Dosage: UNK
     Route: 048
     Dates: start: 20071228, end: 200907
  2. YASMIN [Suspect]
     Dosage: UNK
     Route: 048
     Dates: start: 20071228, end: 200907
  3. OXYCODONE W/PARACETAMOL [Concomitant]
  4. IBUPROFEN [Concomitant]
  5. PROMETHAZINE [Concomitant]

REACTIONS (8)
  - Cholecystitis chronic [None]
  - Cholelithiasis [None]
  - Pancreatitis [None]
  - Injury [None]
  - Pain [None]
  - Emotional distress [None]
  - Anxiety [None]
  - Psychological trauma [None]
